FAERS Safety Report 4937126-X (Version None)
Quarter: 2006Q1

REPORT INFORMATION
  Report Type: 
  Country: None (occurrence: None)
  Receive Date: 20060302
  Receipt Date: 20060227
  Transmission Date: 20060701
  Serious: Yes (Disabling)
  Sender: FDA-Public Use
  Company Number: S06-FRA-00785-01

PATIENT
  Sex: Female

DRUGS (1)
  1. MEMANTINE HCL [Suspect]

REACTIONS (3)
  - ECZEMA NUMMULAR [None]
  - HAEMORRHAGE [None]
  - INSOMNIA [None]
